FAERS Safety Report 8157836-3 (Version None)
Quarter: 2012Q1

REPORT INFORMATION
  Report Type: 
  Country: None (occurrence: None)
  Receive Date: 20120222
  Receipt Date: 20120221
  Transmission Date: 20120608
  Serious: Yes (Life-Threatening)
  Sender: FDA-Public Use
  Company Number: GB-PFIZER INC-2009224525

PATIENT
  Age: 41 Year
  Sex: Female

DRUGS (2)
  1. PROPRANOLOL HCL [Suspect]
     Dosage: 80 MG, 1X/DAY
     Route: 048
  2. VARENICLINE TARTRATE [Suspect]
     Indication: SMOKING CESSATION THERAPY
     Dosage: 1 MG, 2X/DAY
     Route: 048
     Dates: start: 20090404, end: 20090521

REACTIONS (4)
  - HYPOTENSION [None]
  - INTENTIONAL OVERDOSE [None]
  - BRADYCARDIA [None]
  - SUICIDAL BEHAVIOUR [None]
